FAERS Safety Report 4623069-8 (Version None)
Quarter: 2005Q1

REPORT INFORMATION
  Report Type: 
  Country: None (occurrence: None)
  Receive Date: 20050329
  Receipt Date: 20050316
  Transmission Date: 20050727
  Serious: Yes (Other)
  Sender: FDA-Public Use
  Company Number: 2005046321

PATIENT
  Age: 57 Year
  Sex: Female
  Weight: 81.6475 kg

DRUGS (2)
  1. NEURONTIN [Suspect]
     Indication: TIBIA FRACTURE
     Dosage: 600 MG (100 MG, 3 IN 1 D), ORAL
     Route: 048
     Dates: start: 20040101
  2. VITAMINS (VITAMINS) [Concomitant]

REACTIONS (4)
  - DRUG INEFFECTIVE [None]
  - NERVE INJURY [None]
  - PAIN [None]
  - PHARMACEUTICAL PRODUCT COMPLAINT [None]
